FAERS Safety Report 18488514 (Version 1)
Quarter: 2020Q4

REPORT INFORMATION
  Report Type: Spontaneous
  Country: JP (occurrence: JP)
  Receive Date: 20201111
  Receipt Date: 20201111
  Transmission Date: 20210114
  Serious: Yes (Life-Threatening, Hospitalization, Other)
  Sender: FDA-Public Use
  Company Number: JP-ACCORD-207790

PATIENT
  Age: 45 Year
  Sex: Female

DRUGS (1)
  1. TACROLIMUS. [Suspect]
     Active Substance: TACROLIMUS
     Indication: IMMUNOSUPPRESSANT DRUG THERAPY
     Route: 048
     Dates: start: 2015, end: 201606

REACTIONS (3)
  - Hepatitis acute [Recovered/Resolved]
  - Hepatitis B reactivation [Recovered/Resolved]
  - Haemochromatosis [Recovering/Resolving]

NARRATIVE: CASE EVENT DATE: 201809
